FAERS Safety Report 7941965-0 (Version None)
Quarter: 2011Q4

REPORT INFORMATION
  Report Type: 
  Country: None (occurrence: None)
  Receive Date: 20111122
  Receipt Date: 20111108
  Transmission Date: 20120403
  Serious: Yes (Hospitalization, Other)
  Sender: FDA-Public Use
  Company Number: AXC-2011-000484

PATIENT
  Age: 34 Year
  Sex: Female

DRUGS (1)
  1. URSODIOL [Suspect]
     Indication: PRURITUS
     Dosage: 600 MG,QD

REACTIONS (12)
  - ANAEMIA [None]
  - PRURITUS [None]
  - THROMBOCYTOPENIA [None]
  - CONDITION AGGRAVATED [None]
  - CHOLESTASIS [None]
  - FOETAL GROWTH RESTRICTION [None]
  - VARICES OESOPHAGEAL [None]
  - MATERNAL DRUGS AFFECTING FOETUS [None]
  - PREMATURE RUPTURE OF MEMBRANES [None]
  - BREECH PRESENTATION [None]
  - PREMATURE LABOUR [None]
  - POST PROCEDURAL HAEMORRHAGE [None]
